FAERS Safety Report 4436485-4 (Version None)
Quarter: 2004Q3

REPORT INFORMATION
  Report Type: 
  Country: None (occurrence: None)
  Receive Date: 20040830
  Receipt Date: 20040526
  Transmission Date: 20050211
  Serious: Yes (Hospitalization)
  Sender: FDA-Public Use
  Company Number: US-BRISTOL-MYERS SQUIBB COMPANY-12597019

PATIENT
  Age: 51 Year
  Sex: Female
  Weight: 125 kg

DRUGS (3)
  1. ABILIFY [Suspect]
     Indication: SCHIZOPHRENIA, PARANOID TYPE
     Route: 048
     Dates: start: 20030101
  2. ABILIFY [Suspect]
     Indication: BIPOLAR DISORDER
     Route: 048
     Dates: start: 20030101
  3. NAVANE [Concomitant]
     Route: 048
     Dates: start: 20030101

REACTIONS (11)
  - ABNORMAL BEHAVIOUR [None]
  - DYSPNOEA [None]
  - FEAR [None]
  - HALLUCINATION, VISUAL [None]
  - HOMICIDAL IDEATION [None]
  - HYPERVENTILATION [None]
  - INCREASED UPPER AIRWAY SECRETION [None]
  - INSOMNIA [None]
  - MUSCLE TIGHTNESS [None]
  - NAUSEA [None]
  - SUICIDAL IDEATION [None]
